FAERS Safety Report 19998226 (Version 4)
Quarter: 2023Q2

REPORT INFORMATION
  Report Type: Report from Study
  Country: IT (occurrence: IT)
  Receive Date: 20211026
  Receipt Date: 20230628
  Transmission Date: 20230721
  Serious: Yes (Other)
  Sender: FDA-Public Use
  Company Number: IT-TAKEDA-2021TUS063787

PATIENT
  Age: 66 Year
  Sex: Female

DRUGS (8)
  1. TEDUGLUTIDE [Suspect]
     Active Substance: TEDUGLUTIDE
     Indication: Short-bowel syndrome
     Dosage: 2.4 MILLIGRAM, 1/WEEK
     Route: 042
     Dates: start: 201907
  2. TEDUGLUTIDE [Suspect]
     Active Substance: TEDUGLUTIDE
     Indication: Short-bowel syndrome
     Dosage: 2.4 MILLIGRAM, 1/WEEK
     Route: 042
     Dates: start: 201907
  3. TEDUGLUTIDE [Suspect]
     Active Substance: TEDUGLUTIDE
     Indication: Short-bowel syndrome
     Dosage: 2.4 MILLIGRAM, 1/WEEK
     Route: 042
     Dates: start: 201907
  4. TEDUGLUTIDE [Suspect]
     Active Substance: TEDUGLUTIDE
     Indication: Short-bowel syndrome
     Dosage: 2.4 MILLIGRAM, 1/WEEK
     Route: 042
     Dates: start: 201907
  5. VITAMIN D [Concomitant]
     Active Substance: VITAMIN D NOS
     Indication: Osteoporosis
     Dosage: 25000 INTERNATIONAL UNIT, 1/WEEK
     Route: 048
     Dates: end: 2021
  6. CALCIUM [Concomitant]
     Active Substance: CALCIUM
     Indication: Osteoporosis
     Dosage: 1000 MILLIGRAM, QD
     Route: 048
     Dates: end: 2021
  7. DEURSIL [Concomitant]
     Active Substance: URSODIOL
     Indication: Cholelithiasis
     Dosage: 300 MILLIGRAM, BID
     Route: 048
     Dates: end: 2021
  8. EN [Concomitant]
     Active Substance: DELORAZEPAM
     Indication: Insomnia
     Dosage: 1 INTERNATIONAL UNIT, QD
     Route: 048

REACTIONS (4)
  - Gallbladder enlargement [Not Recovered/Not Resolved]
  - Constipation [Recovered/Resolved]
  - Hepatomegaly [Not Recovered/Not Resolved]
  - Vomiting [Recovered/Resolved]

NARRATIVE: CASE EVENT DATE: 20210901
